FAERS Safety Report 22196122 (Version 1)
Quarter: 2023Q2

REPORT INFORMATION
  Report Type: Spontaneous
  Country: CN (occurrence: CN)
  Receive Date: 20230411
  Receipt Date: 20230411
  Transmission Date: 20230721
  Serious: Yes (Other)
  Sender: FDA-Public Use
  Company Number: None

PATIENT
  Age: 72 Year
  Sex: Male
  Weight: 70 kg

DRUGS (8)
  1. CYCLOPHOSPHAMIDE [Suspect]
     Active Substance: CYCLOPHOSPHAMIDE
     Indication: Peripheral T-cell lymphoma unspecified stage IV
     Dosage: 1.08 G, QD, DILUTED WITH 40 ML OF 0.9% SODIUM CHLORIDE, AS A PART OF CHOP REGIMEN
     Route: 041
     Dates: start: 20230316, end: 20230316
  2. SODIUM CHLORIDE [Suspect]
     Active Substance: SODIUM CHLORIDE
     Indication: Medication dilution
     Dosage: 0.9%, 40 ML, QD, USED TO DILUTE 1.08 G OF CYCLOPHOSPHAMIDE
     Route: 041
     Dates: start: 20230316, end: 20230316
  3. SODIUM CHLORIDE [Suspect]
     Active Substance: SODIUM CHLORIDE
     Dosage: 0.9%, 40 ML, QD, USED TO DILUTE 4 MG OF VINDESINE SULFATE
     Route: 041
     Dates: start: 20230316, end: 20230316
  4. SODIUM CHLORIDE [Suspect]
     Active Substance: SODIUM CHLORIDE
     Dosage: 0.9%, 100 ML, QD, USED TO DILUTE 16.28 MG OF DEXAMETHASONE SODIUM PHOSPHATE
     Route: 041
     Dates: start: 20230316, end: 20230320
  5. DEXTROSE MONOHYDRATE [Suspect]
     Active Substance: DEXTROSE MONOHYDRATE
     Indication: Medication dilution
     Dosage: 5%, 250 ML, QD, USED TO DILUTE 60 MG OF DOXORUBICIN HYDROCHLORIDE LIPOSOME
     Route: 041
     Dates: start: 20230316, end: 20230316
  6. VINDESINE SULFATE [Suspect]
     Active Substance: VINDESINE SULFATE
     Indication: Peripheral T-cell lymphoma unspecified stage IV
     Dosage: 4 MG, QD, DILUTED WITH 40 ML OF 0.9% SODIUM CHLORIDE, AS A PART OF CHOP REGIMEN
     Route: 041
     Dates: start: 20230316, end: 20230316
  7. DOXORUBICIN HYDROCHLORIDE [Suspect]
     Active Substance: DOXORUBICIN HYDROCHLORIDE
     Indication: Peripheral T-cell lymphoma unspecified stage IV
     Dosage: 60 MG, QD, DILUTED WITH 250 ML OF 5% GLUCOSE, AS A PART OF CHOP REGIMEN
     Route: 041
     Dates: start: 20230316, end: 20230316
  8. DEXAMETHASONE SODIUM PHOSPHATE [Suspect]
     Active Substance: DEXAMETHASONE SODIUM PHOSPHATE
     Indication: Peripheral T-cell lymphoma unspecified stage IV
     Dosage: 16.28 MG, QD, DILUTED WITH 100 ML OF 0.9% SODIUM CHLORIDE, AS A PART OF CHOP REGIMEN
     Route: 041
     Dates: start: 20230316, end: 20230320

REACTIONS (1)
  - Myelosuppression [Recovering/Resolving]

NARRATIVE: CASE EVENT DATE: 20230320
